FAERS Safety Report 8691352 (Version 5)
Quarter: 2012Q4

REPORT INFORMATION
  Report Type: 
  Country: GB (occurrence: GB)
  Receive Date: 20120730
  Receipt Date: 20121107
  Transmission Date: 20130627
  Serious: Yes (Death, Hospitalization)
  Sender: FDA-Public Use
  Company Number: PHFR2012GB004193

PATIENT
  Age: 37 Year
  Sex: Male

DRUGS (1)
  1. CLOZARIL [Suspect]
     Indication: SCHIZOPHRENIA
     Route: 048
     Dates: start: 20070816, end: 201206

REACTIONS (5)
  - Completed suicide [Fatal]
  - Drowning [Fatal]
  - Schizophrenia [Fatal]
  - Psychotic disorder [Unknown]
  - Malaise [Unknown]
